FAERS Safety Report 7273219-2 (Version None)
Quarter: 2011Q1

REPORT INFORMATION
  Report Type: 
  Country: None (occurrence: None)
  Receive Date: 20110203
  Receipt Date: 20110126
  Transmission Date: 20110831
  Serious: Yes (Other)
  Sender: FDA-Public Use
  Company Number: CA-JNJFOC-20100908005

PATIENT
  Sex: Male
  Weight: 81.4 kg

DRUGS (17)
  1. REMICADE [Suspect]
     Route: 042
  2. REMICADE [Suspect]
     Dosage: 4TH INFUSION
     Route: 042
  3. PREDNISONE [Concomitant]
     Dosage: 5 DAYS POST INFUSION
     Route: 048
  4. REMICADE [Suspect]
     Route: 042
  5. SOLU-CORTEF [Concomitant]
     Indication: PREMEDICATION
     Route: 042
  6. SOLU-CORTEF [Concomitant]
     Route: 042
  7. PREDNISONE [Concomitant]
     Route: 048
  8. PREDNISONE [Concomitant]
     Route: 048
  9. FOLIC ACID [Concomitant]
     Route: 048
  10. BENADRYL [Concomitant]
     Indication: PREMEDICATION
  11. TYLENOL-500 [Concomitant]
     Indication: PREMEDICATION
     Dosage: 5 DAYS PRE AND POST INFUSION
     Route: 048
  12. PREDNISONE [Concomitant]
     Route: 048
  13. METHOTREXATE [Concomitant]
     Route: 048
  14. REACTINE [Concomitant]
     Dosage: 5 DAYS PRE AND POST INFUSION
     Route: 048
  15. REMICADE [Suspect]
     Route: 042
  16. BENADRYL [Concomitant]
  17. REMICADE [Suspect]
     Indication: COLITIS ULCERATIVE
     Route: 042

REACTIONS (8)
  - GAIT DISTURBANCE [None]
  - TREMOR [None]
  - INFUSION RELATED REACTION [None]
  - FEELING HOT [None]
  - DYSPNOEA [None]
  - CHEST DISCOMFORT [None]
  - FLUSHING [None]
  - CHILLS [None]
